FAERS Safety Report 17835628 (Version 1)
Quarter: 2020Q2

REPORT INFORMATION
  Report Type: Spontaneous
  Country: DK (occurrence: DK)
  Receive Date: 20200528
  Receipt Date: 20200528
  Transmission Date: 20200714
  Serious: Yes (Hospitalization)
  Sender: FDA-Public Use
  Company Number: NVSC2020DK140279

PATIENT
  Age: 67 Year
  Sex: Male

DRUGS (3)
  1. CLOPIXOL [Interacting]
     Active Substance: ZUCLOPENTHIXOL
     Indication: PSYCHOTIC DISORDER
     Dosage: 20 MG, QD
     Route: 048
     Dates: start: 1990, end: 20200226
  2. KEMADRIN [Suspect]
     Active Substance: PROCYCLIDINE HYDROCHLORIDE
     Indication: TREMOR
     Dosage: 10 MG, QD
     Route: 048
     Dates: start: 2017
  3. FLUOXETINE [Suspect]
     Active Substance: FLUOXETINE HYDROCHLORIDE
     Indication: DEPRESSION
     Dosage: 20 MG, QD (STARTDATO ER UKENDT, MEN IHVERTFALD SIDEN MARTS 2018)
     Route: 048

REACTIONS (3)
  - Drug interaction [Unknown]
  - Cognitive disorder [Unknown]
  - Accidental overdose [Recovered/Resolved]

NARRATIVE: CASE EVENT DATE: 202002
